FAERS Safety Report 17951413 (Version 2)
Quarter: 2021Q4

REPORT INFORMATION
  Report Type: Report from Study
  Country: DE (occurrence: DE)
  Receive Date: 20200626
  Receipt Date: 20211013
  Transmission Date: 20220303
  Serious: Yes (Other)
  Sender: FDA-Public Use
  Company Number: NVSC2020DE180016

PATIENT
  Sex: Female
  Weight: 70 kg

DRUGS (3)
  1. KISQALI [Suspect]
     Active Substance: RIBOCICLIB
     Indication: Breast cancer metastatic
     Dosage: 600 MG, QD SCHEMA 21 DAYS INTAKE, THAN 7 DAYS PAUSE
     Route: 048
     Dates: start: 20190515, end: 20190710
  2. KISQALI [Suspect]
     Active Substance: RIBOCICLIB
     Dosage: 400 MG, QD (SCHEMA 21 DAYS INTAKE, THAN 7 DAYS PAUSE400 MG, QD)
     Route: 048
     Dates: start: 20190711
  3. FULVESTRANT [Suspect]
     Active Substance: FULVESTRANT
     Indication: Breast cancer metastatic
     Dosage: 500 MG, Q4W
     Route: 030
     Dates: start: 20190514

REACTIONS (1)
  - Hypertensive crisis [Recovered/Resolved]

NARRATIVE: CASE EVENT DATE: 20200129
